FAERS Safety Report 26062697 (Version 1)
Quarter: 2025Q4

REPORT INFORMATION
  Report Type: Report from Study
  Country: GB (occurrence: None)
  Receive Date: 20251119
  Receipt Date: 20251119
  Transmission Date: 20260118
  Serious: Yes (Other)
  Sender: ADIENNE PHARMA & BIOTECH
  Company Number: GB-ADIENNEP-2025AD000913

PATIENT
  Sex: Male

DRUGS (1)
  1. THIOTEPA [Suspect]
     Active Substance: THIOTEPA
     Indication: Autologous haematopoietic stem cell transplant

REACTIONS (1)
  - Febrile neutropenia [Unknown]
